FAERS Safety Report 12915807 (Version 1)
Quarter: 2016Q4

REPORT INFORMATION
  Report Type: Spontaneous
  Country: US (occurrence: None)
  Receive Date: 20161107
  Receipt Date: 20161107
  Transmission Date: 20170207
  Serious: Yes (Hospitalization)
  Sender: FDA-Public Use
  Company Number: DKLU2002917

PATIENT
  Age: 75 Year
  Sex: Male
  Weight: 65 kg

DRUGS (15)
  1. CARBIDOPA/LEVODOPA CR 50/200(LEVODOPA, CARBIDOPA) [Concomitant]
  2. DROXIDOPA(DROXIDOPA) [Suspect]
     Active Substance: DROXIDOPA
     Indication: ORTHOSTATIC HYPOTENSION
     Dosage: 300 MG (100 MG,3 IN 1 D)
     Dates: start: 20140128, end: 20140128
  3. PARCOPA 25/100(LEVODOPA, CARBIDOPA) [Concomitant]
  4. AMANTADINE [Concomitant]
     Active Substance: AMANTADINE
  5. ASPIRIN(ACETYLSALICYLIC ACID) [Concomitant]
     Active Substance: ASPIRIN
  6. QUETIAPINE. [Concomitant]
     Active Substance: QUETIAPINE
  7. IBUPROFEN. [Concomitant]
     Active Substance: IBUPROFEN
  8. VISINE-AC(TETRYZOLINE) [Concomitant]
  9. FLUDROCORTISONE [Concomitant]
     Active Substance: FLUDROCORTISONE
  10. POTASSIUM CHLORIDE. [Concomitant]
     Active Substance: POTASSIUM CHLORIDE
  11. CALCIUM [Concomitant]
     Active Substance: CALCIUM
  12. SIMVASTATIN. [Concomitant]
     Active Substance: SIMVASTATIN
  13. MULTIVITAMIN(ERGOCALCIFEROL, ASCORBIC ACID, FOLIC ACID, THIAMINE HYDROCHLORIDE, RETINOL, RIBOFLAVIN, NICOTINAMIDE, PANTHENOL) [Concomitant]
  14. VITAMIN D(ERGOCALCIFEROL) [Concomitant]
  15. REQUIP XL(ROPINIROLE HYDROCHLORIDE) [Concomitant]

REACTIONS (7)
  - Haemorrhage intracranial [None]
  - Haematocrit decreased [None]
  - Hypertension [None]
  - Neutrophil count increased [None]
  - Haemoglobin decreased [None]
  - Lymphocyte count decreased [None]
  - Fall [None]

NARRATIVE: CASE EVENT DATE: 20140131
